FAERS Safety Report 21489961 (Version 1)
Quarter: 2022Q4

REPORT INFORMATION
  Report Type: Spontaneous
  Country: GB (occurrence: None)
  Receive Date: 20221021
  Receipt Date: 20221021
  Transmission Date: 20230113
  Serious: Yes (Other)
  Sender: FDA-Public Use
  Company Number: 2022A347298

PATIENT
  Age: 56 Year
  Sex: Male

DRUGS (1)
  1. DAPAGLIFLOZIN [Suspect]
     Active Substance: DAPAGLIFLOZIN
     Indication: Adverse drug reaction
     Dosage: 10 MG; ; UNKNOWN
     Route: 065
     Dates: start: 20220907, end: 20220929

REACTIONS (4)
  - Dysarthria [Recovered/Resolved]
  - Rash erythematous [Recovered/Resolved]
  - Diabetic ketosis [Recovered/Resolved]
  - Reflexes abnormal [Recovered/Resolved]

NARRATIVE: CASE EVENT DATE: 20220912
